FAERS Safety Report 9780280 (Version 1)
Quarter: 2013Q4

REPORT INFORMATION
  Report Type: Spontaneous
  Country: US (occurrence: US)
  Receive Date: 20131223
  Receipt Date: 20131223
  Transmission Date: 20140711
  Serious: Yes (Death, Hospitalization)
  Sender: FDA-Public Use
  Company Number: US-CELGENEUS-163-21880-13123259

PATIENT
  Age: 69 Year
  Sex: Male

DRUGS (3)
  1. REVLIMID [Suspect]
     Indication: CHRONIC LYMPHOCYTIC LEUKAEMIA
     Dosage: 10 MILLIGRAM
     Route: 048
     Dates: start: 20131120, end: 20131124
  2. REVLIMID [Suspect]
     Indication: ACUTE MYELOID LEUKAEMIA
  3. BLOOD TRANSFUSIONS [Concomitant]
     Indication: FULL BLOOD COUNT DECREASED
     Route: 041
     Dates: start: 2013, end: 2013

REACTIONS (4)
  - Death [Fatal]
  - Loss of control of legs [Unknown]
  - Blood glucose increased [Unknown]
  - Pyrexia [Unknown]
